FAERS Safety Report 14426020 (Version 1)
Quarter: 2018Q1

REPORT INFORMATION
  Report Type: Spontaneous
  Country: US (occurrence: US)
  Receive Date: 20180123
  Receipt Date: 20180123
  Transmission Date: 20180509
  Serious: No
  Sender: FDA-Public Use
  Company Number: US-SIGMAPHARM LABORATORIES, LLC-2017SIG00063

PATIENT
  Sex: Female
  Weight: 96.15 kg

DRUGS (1)
  1. LIOTHYRONINE SODIUM. [Suspect]
     Active Substance: LIOTHYRONINE SODIUM
     Indication: AUTOIMMUNE THYROIDITIS
     Dosage: 5 MCG, 2X/DAY
     Route: 048
     Dates: start: 201710, end: 20171106

REACTIONS (11)
  - Feeling abnormal [Not Recovered/Not Resolved]
  - Pallor [Recovered/Resolved]
  - Arthralgia [Not Recovered/Not Resolved]
  - Hyperhidrosis [Not Recovered/Not Resolved]
  - Hair texture abnormal [Not Recovered/Not Resolved]
  - Weight increased [Not Recovered/Not Resolved]
  - Reaction to excipient [Recovered/Resolved]
  - Alopecia [Not Recovered/Not Resolved]
  - Abdominal distension [Recovering/Resolving]
  - Bacterial infection [Unknown]
  - Discomfort [Not Recovered/Not Resolved]

NARRATIVE: CASE EVENT DATE: 2017
